FAERS Safety Report 18361823 (Version 6)
Quarter: 2020Q4

REPORT INFORMATION
  Report Type: Report from Study
  Country: NL (occurrence: NL)
  Receive Date: 20201008
  Receipt Date: 20201218
  Transmission Date: 20210114
  Serious: Yes (Other)
  Sender: FDA-Public Use
  Company Number: NL-INCYTE CORPORATION-2019IN000130

PATIENT

DRUGS (12)
  1. JAKAVI [Suspect]
     Active Substance: RUXOLITINIB
     Indication: POLYCYTHAEMIA VERA
     Dosage: 20 OT
     Route: 048
     Dates: start: 20180922, end: 20200403
  2. CARBASALAATCALCIUM [Concomitant]
     Active Substance: CARBASPIRIN CALCIUM
     Indication: ANGIOPATHY
     Dosage: 100 UNK
     Route: 065
     Dates: start: 20031105
  3. TRAMADOL. [Concomitant]
     Active Substance: TRAMADOL
     Indication: PAIN
     Dosage: 37.5 OT
     Route: 065
     Dates: start: 20200331, end: 20200404
  4. MORFINE [Concomitant]
     Active Substance: MORPHINE
     Indication: PAIN
     Dosage: 50 OT
     Route: 065
     Dates: start: 20200404, end: 20200410
  5. MORFINE [Concomitant]
     Active Substance: MORPHINE
     Dosage: 10 OT
     Route: 065
     Dates: start: 20200410, end: 20200514
  6. ATACAND [Concomitant]
     Active Substance: CANDESARTAN CILEXETIL
     Indication: HYPERTENSION
     Dosage: UNK
     Route: 065
     Dates: start: 2006, end: 20200404
  7. BISOPROLOL [Concomitant]
     Active Substance: BISOPROLOL
     Indication: HYPERTENSION
     Dosage: 10 OT
     Route: 065
     Dates: start: 20200325
  8. PANTOPRAZOL [PANTOPRAZOLE SODIUM SESQUIHYDRATE] [Concomitant]
     Active Substance: PANTOPRAZOLE SODIUM
     Indication: PROPHYLAXIS
     Dosage: 40 UNK
     Route: 065
     Dates: start: 20031218
  9. PREGABALINE [Concomitant]
     Active Substance: PREGABALIN
     Indication: PAIN
     Dosage: 75 OT
     Route: 065
     Dates: start: 20200401, end: 20200404
  10. JAKAVI [Suspect]
     Active Substance: RUXOLITINIB
     Dosage: 20 OT
     Route: 048
     Dates: start: 20200405
  11. PARACETAMOL [Concomitant]
     Active Substance: ACETAMINOPHEN
     Indication: PAIN
     Dosage: 325 OT
     Route: 065
     Dates: start: 20200331
  12. ATORVASTATINE [ATORVASTATIN] [Concomitant]
     Active Substance: ATORVASTATIN
     Indication: HYPERCHOLESTEROLAEMIA
     Dosage: 10 UNK (LAST DOSE WAS ON 18 SEP 2018)
     Route: 065
     Dates: start: 20031106, end: 20180918

REACTIONS (8)
  - Cataract [Recovered/Resolved]
  - Subcutaneous haematoma [Not Recovered/Not Resolved]
  - Nausea [Recovered/Resolved]
  - Lymph gland infection [Recovered/Resolved]
  - Varicella zoster virus infection [Recovered/Resolved with Sequelae]
  - Fatigue [Not Recovered/Not Resolved]
  - Acute kidney injury [Recovered/Resolved with Sequelae]
  - Chronic kidney disease [Recovered/Resolved with Sequelae]

NARRATIVE: CASE EVENT DATE: 20181220
